FAERS Safety Report 5975924-4 (Version None)
Quarter: 2008Q4

REPORT INFORMATION
  Report Type: 
  Country: None (occurrence: None)
  Receive Date: 20081202
  Receipt Date: 20081120
  Transmission Date: 20090506
  Serious: Yes (Life-Threatening)
  Sender: FDA-Public Use
  Company Number: DE-ROCHE-599025

PATIENT
  Sex: Female
  Weight: 49 kg

DRUGS (2)
  1. PEG-INTERFERON ALFA 2A (RO 25-8310) [Suspect]
     Route: 058
     Dates: start: 20080619, end: 20081117
  2. RIBAVIRIN [Suspect]
     Route: 048
     Dates: start: 20080619, end: 20081117

REACTIONS (1)
  - CONVULSION [None]
